FAERS Safety Report 16908390 (Version 1)
Quarter: 2019Q4

REPORT INFORMATION
  Report Type: Spontaneous
  Country: US (occurrence: US)
  Receive Date: 20191010
  Receipt Date: 20191010
  Transmission Date: 20200122
  Serious: No
  Sender: FDA-Public Use
  Company Number: None

PATIENT
  Age: 71 Year
  Sex: Male
  Weight: 71.1 kg

DRUGS (3)
  1. DOVE ADVANCED CARE SENSITIVE ANTIPERSPIRANT AND DEODORANT [Suspect]
     Active Substance: ALUMINUM ZIRCONIUM TETRACHLOROHYDREX GLY
     Indication: SKIN ODOUR ABNORMAL
     Route: 061
     Dates: start: 20190910, end: 20190915
  2. POTASSIUM CITRATE 15 MEQ [Concomitant]
  3. ASPIRIN. [Concomitant]
     Active Substance: ASPIRIN

REACTIONS (2)
  - Rash [None]
  - Product packaging confusion [None]

NARRATIVE: CASE EVENT DATE: 20190910
